FAERS Safety Report 13866437 (Version 2)
Quarter: 2017Q3

REPORT INFORMATION
  Report Type: Spontaneous
  Country: US (occurrence: US)
  Receive Date: 20170814
  Receipt Date: 20170920
  Transmission Date: 20171127
  Serious: Yes (Death)
  Sender: FDA-Public Use
  Company Number: US-ROCHE-1907870

PATIENT
  Age: 76 Year
  Sex: Female

DRUGS (2)
  1. ACTEMRA [Suspect]
     Active Substance: TOCILIZUMAB
     Indication: PSORIATIC ARTHROPATHY
  2. ACTEMRA [Suspect]
     Active Substance: TOCILIZUMAB
     Indication: RHEUMATOID ARTHRITIS
     Dosage: INJECT 162MG/O.9ML (INDICATION -RHEUMATOID ARTHRITIS OF MULTIPLE SITES)
     Route: 058
     Dates: start: 20161027, end: 20170824

REACTIONS (5)
  - Off label use [Fatal]
  - Abdominal discomfort [Unknown]
  - Nausea [Unknown]
  - Colon cancer [Fatal]
  - Intentional product use issue [Fatal]

NARRATIVE: CASE EVENT DATE: 20170315
